FAERS Safety Report 5676909-8 (Version None)
Quarter: 2008Q1

REPORT INFORMATION
  Report Type: 
  Country: None (occurrence: None)
  Receive Date: 20080324
  Receipt Date: 20080310
  Transmission Date: 20080703
  Serious: Yes (Hospitalization, Disabling, Other)
  Sender: FDA-Public Use
  Company Number: US-ELI_LILLY_AND_COMPANY-US200702005595

PATIENT
  Sex: Female

DRUGS (6)
  1. ZYPREXA [Suspect]
     Indication: ABNORMAL BEHAVIOUR
     Dosage: 75 MG, UNK
     Dates: start: 20040701
  2. ZYPREXA [Suspect]
     Dosage: 240 MG, DAILY (1/D)
  3. LEXAPRO [Concomitant]
  4. RISPERIDONE [Concomitant]
  5. LITHIUM CARBONATE [Concomitant]
  6. SEROQUEL [Concomitant]

REACTIONS (15)
  - ABNORMAL BEHAVIOUR [None]
  - AFFECTIVE DISORDER [None]
  - CHOREA [None]
  - CONVULSION [None]
  - DISABILITY [None]
  - FEAR [None]
  - HOMICIDAL IDEATION [None]
  - HOSPITALISATION [None]
  - MALAISE [None]
  - MOOD SWINGS [None]
  - MUSCULAR WEAKNESS [None]
  - SPEECH DISORDER [None]
  - SUICIDAL IDEATION [None]
  - TREMOR [None]
  - VOMITING [None]
